FAERS Safety Report 12451382 (Version 1)
Quarter: 2016Q2

REPORT INFORMATION
  Report Type: Spontaneous
  Country: FR (occurrence: FR)
  Receive Date: 20160609
  Receipt Date: 20160609
  Transmission Date: 20160815
  Serious: Yes (Life-Threatening)
  Sender: FDA-Public Use
  Company Number: FR-PFIZER INC-2016287749

PATIENT
  Age: 40 Year
  Sex: Male

DRUGS (1)
  1. ATRACURIUM BESILATE [Suspect]
     Active Substance: ATRACURIUM BESYLATE
     Indication: ANAESTHESIA PROCEDURE
     Dosage: 50 MG, SINGLE
     Route: 042
     Dates: start: 20160325, end: 20160325

REACTIONS (3)
  - Anaphylactic shock [Recovered/Resolved]
  - Circulatory collapse [Recovered/Resolved]
  - Rash maculo-papular [Recovered/Resolved]

NARRATIVE: CASE EVENT DATE: 20160325
